FAERS Safety Report 15060935 (Version 1)
Quarter: 2018Q2

REPORT INFORMATION
  Report Type: Spontaneous
  Country: US (occurrence: US)
  Receive Date: 20180625
  Receipt Date: 20180625
  Transmission Date: 20180711
  Serious: No
  Sender: FDA-Public Use
  Company Number: US-ROCHE-2057173

PATIENT
  Sex: Male
  Weight: 81.72 kg

DRUGS (1)
  1. KLONOPIN [Suspect]
     Active Substance: CLONAZEPAM
     Indication: PANIC ATTACK
     Dosage: ONE PILL THREE TO FOUR TIMES A WEEK ;ONGOING: YES
     Route: 065

REACTIONS (2)
  - No adverse event [Unknown]
  - Circumstance or information capable of leading to medication error [Unknown]
